FAERS Safety Report 5033377-7 (Version None)
Quarter: 2006Q2

REPORT INFORMATION
  Report Type: 
  Country: None (occurrence: None)
  Receive Date: 20060512
  Receipt Date: 20060315
  Transmission Date: 20061013
  Serious: No
  Sender: FDA-Public Use
  Company Number: SUS1-2006-00307

PATIENT
  Age: 53 Year
  Sex: Female
  Weight: 88.9 kg

DRUGS (5)
  1. FOSRENOL [Suspect]
     Indication: HYPERPHOSPHATAEMIA
     Dosage: 1 G X 4TABS WITH EACH MEAL
     Dates: start: 20050405
  2. SENISPAR (CINACALCET HYDROCHLORIDE) [Concomitant]
  3. LOPRESSOR [Concomitant]
  4. VENOFER [Concomitant]
  5. ZEMPLAR (PARICALCITROL) [Concomitant]

REACTIONS (4)
  - BLOOD PHOSPHORUS INCREASED [None]
  - MEDICATION ERROR [None]
  - PRESCRIBED OVERDOSE [None]
  - VOMITING [None]
